FAERS Safety Report 19152684 (Version 3)
Quarter: 2021Q2

REPORT INFORMATION
  Report Type: Report from Study
  Country: US (occurrence: US)
  Receive Date: 20210419
  Receipt Date: 20210601
  Transmission Date: 20210717
  Serious: Yes (Other)
  Sender: FDA-Public Use
  Company Number: US-GLAXOSMITHKLINE-US2021AMR083208

PATIENT
  Age: 64 Year
  Sex: Female

DRUGS (1)
  1. BELANTAMAB MAFODOTIN. [Suspect]
     Active Substance: BELANTAMAB MAFODOTIN
     Indication: PRODUCT USED FOR UNKNOWN INDICATION
     Dosage: UNK

REACTIONS (7)
  - Corneal cyst [Unknown]
  - Visual acuity reduced [Recovering/Resolving]
  - Visual impairment [Unknown]
  - Photophobia [Unknown]
  - Dry eye [Unknown]
  - Corneal opacity [Unknown]
  - Keratopathy [Unknown]

NARRATIVE: CASE EVENT DATE: 20210323
